FAERS Safety Report 8834358 (Version 1)
Quarter: 2012Q4

REPORT INFORMATION
  Report Type: 
  Country: US (occurrence: US)
  Receive Date: 20121010
  Receipt Date: 20121010
  Transmission Date: 20130627
  Serious: Yes (Other)
  Sender: FDA-Public Use
  Company Number: PHHY2012US087423

PATIENT
  Age: 56 Year
  Sex: Male

DRUGS (5)
  1. CLINDAMYCIN [Suspect]
     Indication: CELLULITIS
     Dosage: 300 mg, 4 times a day
  2. CLINDAMYCIN [Suspect]
     Indication: PROSTATITIS
  3. LEVOTHYROXINE [Concomitant]
  4. TRAZODONE [Concomitant]
  5. DESVENLAFAXINE [Concomitant]
     Dosage: 50 mg, daily

REACTIONS (7)
  - Burning mouth syndrome [Recovered/Resolved]
  - Ageusia [Recovering/Resolving]
  - Dry mouth [Recovered/Resolved]
  - Dysgeusia [Recovering/Resolving]
  - Insomnia [Unknown]
  - Eating disorder [Unknown]
  - Weight decreased [Unknown]
